FAERS Safety Report 12379417 (Version 2)
Quarter: 2016Q2

REPORT INFORMATION
  Report Type: Spontaneous
  Country: US (occurrence: US)
  Receive Date: 20160517
  Receipt Date: 20160602
  Transmission Date: 20160815
  Serious: Yes (Other)
  Sender: FDA-Public Use
  Company Number: US-MDT-ADR-2016-00894

PATIENT
  Age: 13 Year
  Sex: Male

DRUGS (1)
  1. BACLOFEN. [Suspect]
     Active Substance: BACLOFEN
     Dosage: 200.3MCG/DAY
     Route: 037

REACTIONS (2)
  - Implant site extravasation [Unknown]
  - Cerebrospinal fluid leakage [Unknown]
